FAERS Safety Report 19779178 (Version 1)
Quarter: 2021Q3

REPORT INFORMATION
  Report Type: Report from Study
  Country: CH (occurrence: CH)
  Receive Date: 20210902
  Receipt Date: 20210902
  Transmission Date: 20211014
  Serious: Yes (Other)
  Sender: FDA-Public Use
  Company Number: CH-EMD SERONO-9261908

PATIENT
  Age: 39 Year
  Sex: Female

DRUGS (2)
  1. REBIF [Suspect]
     Active Substance: INTERFERON BETA-1A
     Indication: MULTIPLE SCLEROSIS
     Route: 058
     Dates: start: 20200826
  2. FOLIC ACID. [Concomitant]
     Active Substance: FOLIC ACID
     Indication: PREGNANCY
     Route: 048
     Dates: start: 202001

REACTIONS (2)
  - Maternal exposure during pregnancy [Recovered/Resolved]
  - Abortion spontaneous [Unknown]

NARRATIVE: CASE EVENT DATE: 202010
